FAERS Safety Report 25348934 (Version 1)
Quarter: 2025Q2

REPORT INFORMATION
  Report Type: Spontaneous
  Country: US (occurrence: US)
  Receive Date: 20250522
  Receipt Date: 20250522
  Transmission Date: 20250717
  Serious: No
  Sender: JOHNSON AND JOHNSON
  Company Number: US-JNJFOC-20250518696

PATIENT
  Age: 42 Year
  Sex: Female

DRUGS (9)
  1. OPSUMIT [Suspect]
     Active Substance: MACITENTAN
     Indication: Product used for unknown indication
     Route: 065
  2. TRAMADOL [Suspect]
     Active Substance: TRAMADOL
     Indication: Product used for unknown indication
     Route: 065
  3. TREPROSTINIL SODIUM [Suspect]
     Active Substance: TREPROSTINIL SODIUM
     Indication: Pulmonary arterial hypertension
  4. TREPROSTINIL SODIUM [Suspect]
     Active Substance: TREPROSTINIL SODIUM
  5. TREPROSTINIL SODIUM [Suspect]
     Active Substance: TREPROSTINIL SODIUM
  6. TREPROSTINIL SODIUM [Suspect]
     Active Substance: TREPROSTINIL SODIUM
  7. TREPROSTINIL SODIUM [Suspect]
     Active Substance: TREPROSTINIL SODIUM
     Dates: start: 202212
  8. LIDOCAINE [Concomitant]
     Active Substance: LIDOCAINE
     Indication: Product used for unknown indication
  9. TYLENOL [Concomitant]
     Active Substance: ACETAMINOPHEN
     Indication: Product used for unknown indication

REACTIONS (11)
  - Headache [Unknown]
  - Infusion site swelling [Unknown]
  - Infusion site erythema [Not Recovered/Not Resolved]
  - Infusion site pain [Not Recovered/Not Resolved]
  - Infusion site infection [Unknown]
  - Pain in extremity [Unknown]
  - Infusion site irritation [Unknown]
  - Dyspepsia [Unknown]
  - Infusion site warmth [Unknown]
  - Pain [Unknown]
  - Fatigue [Not Recovered/Not Resolved]
